FAERS Safety Report 13439979 (Version 16)
Quarter: 2024Q3

REPORT INFORMATION
  Report Type: Report from Study
  Country: CA (occurrence: CA)
  Receive Date: 20170413
  Receipt Date: 20240718
  Transmission Date: 20241016
  Serious: Yes (Other)
  Sender: ROCHE
  Company Number: CA-002147023-PHHY2012CA047655

PATIENT
  Age: 61 Year
  Sex: Male
  Weight: 70 kg

DRUGS (62)
  1. XOLAIR [Suspect]
     Active Substance: OMALIZUMAB
     Indication: Asthma
     Route: 058
     Dates: start: 20120502
  2. XOLAIR [Suspect]
     Active Substance: OMALIZUMAB
     Route: 058
     Dates: start: 20120628
  3. XOLAIR [Suspect]
     Active Substance: OMALIZUMAB
     Route: 058
     Dates: start: 20130205
  4. XOLAIR [Suspect]
     Active Substance: OMALIZUMAB
     Route: 058
     Dates: start: 20130402
  5. XOLAIR [Suspect]
     Active Substance: OMALIZUMAB
     Route: 058
     Dates: start: 20130430
  6. XOLAIR [Suspect]
     Active Substance: OMALIZUMAB
     Route: 058
     Dates: start: 20130625
  7. XOLAIR [Suspect]
     Active Substance: OMALIZUMAB
     Dosage: UNK
     Route: 058
     Dates: start: 20130709
  8. XOLAIR [Suspect]
     Active Substance: OMALIZUMAB
     Dosage: UNK
     Route: 058
     Dates: start: 20130806
  9. XOLAIR [Suspect]
     Active Substance: OMALIZUMAB
     Dosage: UNK
     Route: 058
     Dates: start: 20131119
  10. XOLAIR [Suspect]
     Active Substance: OMALIZUMAB
     Dosage: UNK
     Route: 058
     Dates: start: 20140218
  11. XOLAIR [Suspect]
     Active Substance: OMALIZUMAB
     Dosage: UNK
     Route: 058
     Dates: start: 20140319
  12. XOLAIR [Suspect]
     Active Substance: OMALIZUMAB
     Dosage: UNK
     Route: 058
     Dates: start: 20140902
  13. XOLAIR [Suspect]
     Active Substance: OMALIZUMAB
     Dosage: UNK
     Route: 058
     Dates: start: 20150331
  14. XOLAIR [Suspect]
     Active Substance: OMALIZUMAB
     Route: 058
     Dates: start: 20150626, end: 20150629
  15. XOLAIR [Suspect]
     Active Substance: OMALIZUMAB
     Dosage: UNK
     Route: 058
     Dates: start: 20160316
  16. XOLAIR [Suspect]
     Active Substance: OMALIZUMAB
     Dosage: UNK
     Route: 058
     Dates: start: 20160426
  17. XOLAIR [Suspect]
     Active Substance: OMALIZUMAB
     Dosage: UNK
     Route: 058
     Dates: start: 20160510
  18. XOLAIR [Suspect]
     Active Substance: OMALIZUMAB
     Dosage: UNK
     Route: 058
     Dates: start: 20160607
  19. XOLAIR [Suspect]
     Active Substance: OMALIZUMAB
     Dosage: UNK
     Route: 058
     Dates: start: 20160705
  20. XOLAIR [Suspect]
     Active Substance: OMALIZUMAB
     Dosage: UNK
     Route: 058
     Dates: start: 20160719
  21. XOLAIR [Suspect]
     Active Substance: OMALIZUMAB
     Dosage: UNK
     Route: 058
     Dates: start: 20160802
  22. XOLAIR [Suspect]
     Active Substance: OMALIZUMAB
     Dosage: UNK
     Route: 058
     Dates: start: 20160816
  23. XOLAIR [Suspect]
     Active Substance: OMALIZUMAB
     Dosage: UNK
     Route: 058
     Dates: start: 20161012
  24. XOLAIR [Suspect]
     Active Substance: OMALIZUMAB
     Dosage: UNK
     Route: 058
     Dates: start: 20161025
  25. XOLAIR [Suspect]
     Active Substance: OMALIZUMAB
     Dosage: UNK
     Route: 058
     Dates: start: 20170123
  26. XOLAIR [Suspect]
     Active Substance: OMALIZUMAB
     Dosage: UNK
     Route: 058
     Dates: start: 20170321
  27. XOLAIR [Suspect]
     Active Substance: OMALIZUMAB
     Dosage: UNK
     Route: 058
     Dates: start: 20170404
  28. XOLAIR [Suspect]
     Active Substance: OMALIZUMAB
     Dosage: UNK
     Route: 065
     Dates: start: 20170502
  29. XOLAIR [Suspect]
     Active Substance: OMALIZUMAB
     Dosage: UNK
     Route: 065
     Dates: start: 20170516
  30. XOLAIR [Suspect]
     Active Substance: OMALIZUMAB
     Dosage: UNK
     Route: 058
     Dates: start: 20170530
  31. XOLAIR [Suspect]
     Active Substance: OMALIZUMAB
     Dosage: UNK
     Route: 058
     Dates: start: 20170627
  32. XOLAIR [Suspect]
     Active Substance: OMALIZUMAB
     Dosage: UNK
     Route: 058
     Dates: start: 20170711
  33. XOLAIR [Suspect]
     Active Substance: OMALIZUMAB
     Route: 058
     Dates: start: 20180320
  34. XOLAIR [Suspect]
     Active Substance: OMALIZUMAB
     Route: 058
     Dates: start: 20180403
  35. XOLAIR [Suspect]
     Active Substance: OMALIZUMAB
     Route: 058
     Dates: start: 20180109
  36. XOLAIR [Suspect]
     Active Substance: OMALIZUMAB
     Route: 058
     Dates: start: 20200319
  37. XOLAIR [Suspect]
     Active Substance: OMALIZUMAB
     Route: 058
     Dates: start: 20200402
  38. XOLAIR [Suspect]
     Active Substance: OMALIZUMAB
     Route: 058
  39. XOLAIR [Suspect]
     Active Substance: OMALIZUMAB
     Route: 058
     Dates: start: 20150130
  40. XOLAIR [Suspect]
     Active Substance: OMALIZUMAB
     Route: 058
  41. XOLAIR [Suspect]
     Active Substance: OMALIZUMAB
     Dosage: UNK
     Route: 058
  42. XOLAIR [Suspect]
     Active Substance: OMALIZUMAB
     Route: 065
  43. XOLAIR [Suspect]
     Active Substance: OMALIZUMAB
     Route: 065
  44. XOLAIR [Suspect]
     Active Substance: OMALIZUMAB
     Route: 065
  45. XOLAIR [Suspect]
     Active Substance: OMALIZUMAB
     Route: 065
  46. XOLAIR [Suspect]
     Active Substance: OMALIZUMAB
     Route: 065
  47. XOLAIR [Suspect]
     Active Substance: OMALIZUMAB
     Route: 065
  48. XOLAIR [Suspect]
     Active Substance: OMALIZUMAB
     Route: 065
  49. XOLAIR [Suspect]
     Active Substance: OMALIZUMAB
     Route: 065
  50. XOLAIR [Suspect]
     Active Substance: OMALIZUMAB
     Route: 065
  51. XOLAIR [Suspect]
     Active Substance: OMALIZUMAB
     Route: 065
  52. XOLAIR [Suspect]
     Active Substance: OMALIZUMAB
     Route: 065
  53. XOLAIR [Suspect]
     Active Substance: OMALIZUMAB
     Route: 065
  54. PREDNISONE [Concomitant]
     Active Substance: PREDNISONE
     Indication: Product used for unknown indication
     Route: 065
     Dates: start: 20120612, end: 20120618
  55. PREDNISONE [Concomitant]
     Active Substance: PREDNISONE
     Route: 065
  56. PREDNISONE [Concomitant]
     Active Substance: PREDNISONE
     Route: 065
  57. PREDNISONE [Concomitant]
     Active Substance: PREDNISONE
  58. PREDNISONE [Concomitant]
     Active Substance: PREDNISONE
  59. PREDNISONE [Concomitant]
     Active Substance: PREDNISONE
     Route: 065
  60. PREDNISONE [Concomitant]
     Active Substance: PREDNISONE
     Route: 065
  61. SYMBICORT [Concomitant]
     Active Substance: BUDESONIDE\FORMOTEROL FUMARATE DIHYDRATE
     Indication: Product used for unknown indication
     Dosage: 2 DF, QID (2 PUFFS 4 TIMES A DAY)
     Route: 065
  62. VENTOLIN [Concomitant]
     Active Substance: ALBUTEROL SULFATE
     Indication: Product used for unknown indication
     Dosage: UNK
     Route: 065

REACTIONS (39)
  - Dyspnoea [Not Recovered/Not Resolved]
  - Throat irritation [Recovering/Resolving]
  - Spirometry abnormal [Unknown]
  - Malaise [Unknown]
  - Obstructive airways disorder [Not Recovered/Not Resolved]
  - Throat tightness [Unknown]
  - Rhonchi [Unknown]
  - Rhinorrhoea [Unknown]
  - Body temperature decreased [Not Recovered/Not Resolved]
  - Nasal congestion [Unknown]
  - Herpes zoster [Unknown]
  - Hypoaesthesia oral [Unknown]
  - Snoring [Unknown]
  - Obstructive sleep apnoea syndrome [Unknown]
  - Hypoaesthesia [Unknown]
  - Oropharyngeal pain [Recovering/Resolving]
  - Pyrexia [Recovered/Resolved]
  - Injection site haemorrhage [Recovered/Resolved]
  - Asthma [Unknown]
  - Pruritus [Unknown]
  - Cough [Unknown]
  - Fatigue [Recovered/Resolved]
  - Headache [Recovered/Resolved]
  - Rash pruritic [Recovering/Resolving]
  - Rash [Recovering/Resolving]
  - Wrong technique in product usage process [Unknown]
  - Product availability issue [Unknown]
  - Product dose omission issue [Unknown]
  - Incorrect dose administered [Unknown]
  - Blood pressure increased [Not Recovered/Not Resolved]
  - Arthralgia [Recovered/Resolved]
  - Nasopharyngitis [Unknown]
  - Skin wound [Unknown]
  - Wheezing [Unknown]
  - Forced expiratory volume decreased [Unknown]
  - Productive cough [Unknown]
  - Chest discomfort [Recovered/Resolved]
  - Rash papular [Recovering/Resolving]
  - Weight decreased [Unknown]

NARRATIVE: CASE EVENT DATE: 20120628
